FAERS Safety Report 8180623 (Version 6)
Quarter: 2012Q4

REPORT INFORMATION
  Report Type: Report from Study
  Country: US (occurrence: US)
  Receive Date: 20111014
  Receipt Date: 20121120
  Transmission Date: 20130627
  Serious: Yes (Death, Hospitalization)
  Sender: FDA-Public Use
  Company Number: US-BRISTOL-MYERS SQUIBB COMPANY-16037574

PATIENT
  Age: 78 Year
  Sex: Female

DRUGS (5)
  1. BLINDED: SAXAGLIPTIN [Suspect]
     Indication: TYPE 2 DIABETES MELLITUS
     Dates: start: 20110218, end: 20111016
  2. METOPROLOL TARTRATE [Suspect]
  3. LEVEMIR [Suspect]
     Indication: TYPE 2 DIABETES MELLITUS
  4. BLINDED: PLACEBO [Suspect]
     Indication: TYPE 2 DIABETES MELLITUS
     Dates: start: 20110218, end: 20111016
  5. ASPIRIN [Concomitant]

REACTIONS (4)
  - Arrhythmia [Fatal]
  - Dehydration [Recovered/Resolved]
  - Azotaemia [Recovering/Resolving]
  - Cellulitis [Recovering/Resolving]
